FAERS Safety Report 9567342 (Version 2)
Quarter: 2013Q3

REPORT INFORMATION
  Report Type: Spontaneous
  Country: US (occurrence: US)
  Receive Date: 20130930
  Receipt Date: 20130930
  Transmission Date: 20140515
  Serious: No
  Sender: FDA-Public Use
  Company Number: US-AMGEN-USASP2012062346

PATIENT
  Age: 59 Year
  Sex: Female
  Weight: 112.29 kg

DRUGS (21)
  1. ENBREL [Suspect]
     Indication: RHEUMATOID ARTHRITIS
     Dosage: 50 MG, QWK
     Route: 058
     Dates: start: 201207, end: 20120829
  2. PREDNISONE [Concomitant]
     Dosage: 10 MG, 1 1/2 DAILY
  3. PREDNISONE [Concomitant]
     Dosage: 5 MG, 3 TIMES DAILY FOR 1 WEEK
     Route: 048
  4. ALLOPURINOL [Concomitant]
     Dosage: 100 MG, 3 TABLETS DAILY
  5. FUROSEMIDE [Concomitant]
     Dosage: 40 MG, 1 TABLET EVERY DAY FOR 90 DAYS
     Route: 048
  6. OMEPRAZOLE [Concomitant]
     Dosage: 20 MG, DELAYED RELEASE CAPSULE
  7. HYDROCHLOROTHIAZIDE [Concomitant]
     Dosage: 25 MG, 1 TABLET DAILY
  8. METFORMIN [Concomitant]
     Dosage: 500 MG, BID
  9. LISINOPRIL [Concomitant]
     Dosage: 40 MG, QD
  10. ARAVA [Concomitant]
     Dosage: 20 MG, QD
     Route: 048
  11. VITAMIN C                          /00008001/ [Concomitant]
     Dosage: 500 MG, BID 1 TABLET TWICE A DAY WITH THE IRON
  12. LYRICA [Concomitant]
     Dosage: 150 MG, BID
  13. HYDROCODONE W/ACETAMINOPHEN [Concomitant]
     Dosage: 5MG-325 MG TAB
  14. PROAIR HFA [Concomitant]
     Dosage: AS NEEDED
  15. GLUCOSAMINE CHONDROITIN COMPLEX    /06278301/ [Concomitant]
     Dosage: 750MG-100MG-125MG-1.65 MG TAB
  16. PREDNISOLONE ACETATE [Concomitant]
     Dosage: 1 UNK, UNK
  17. POTASSIUM GLUCONATE [Concomitant]
     Dosage: UNK
  18. MULTIPLE VITAMINS [Concomitant]
     Dosage: UNK UNK, QD
  19. CALTRATE D PLUS MINERALS [Concomitant]
     Dosage: CALTRATE 600+D PLUS MINERALS 600 MG (1,500 MG)-400 UNIT
  20. IRON [Concomitant]
     Dosage: UNK UNK, BID
  21. BIOTIN [Concomitant]
     Dosage: 1 MG, QD

REACTIONS (11)
  - Diplopia [Not Recovered/Not Resolved]
  - Vision blurred [Not Recovered/Not Resolved]
  - Dry mouth [Not Recovered/Not Resolved]
  - Blister [Recovered/Resolved]
  - Erythema [Recovered/Resolved]
  - Pruritus [Recovered/Resolved]
  - Flushing [Recovered/Resolved]
  - Synovitis [Unknown]
  - Arthralgia [Unknown]
  - Chest discomfort [Unknown]
  - Diarrhoea [Unknown]
